FAERS Safety Report 4522787-X (Version None)
Quarter: 2004Q4

REPORT INFORMATION
  Report Type: 
  Country: None (occurrence: None)
  Receive Date: 20041209
  Receipt Date: 20030605
  Transmission Date: 20050328
  Serious: Yes (Disabling, Other)
  Sender: FDA-Public Use
  Company Number: US-MERCK-0306USA00690

PATIENT
  Age: 42 Year
  Sex: Female
  Weight: 119 kg

DRUGS (1)
  1. VIOXX [Suspect]
     Route: 048

REACTIONS (21)
  - ADVERSE EVENT [None]
  - APHONIA [None]
  - ARRHYTHMIA [None]
  - BACK PAIN [None]
  - BURNING SENSATION [None]
  - BURSITIS [None]
  - GASTRITIS [None]
  - HEADACHE [None]
  - HYPERTENSION [None]
  - JOINT DISLOCATION [None]
  - LOCALISED OSTEOARTHRITIS [None]
  - MENISCUS LESION [None]
  - PAIN IN EXTREMITY [None]
  - PYREXIA [None]
  - RHEUMATOID ARTHRITIS [None]
  - SCIATICA [None]
  - SINUSITIS [None]
  - SLEEP APNOEA SYNDROME [None]
  - SNEEZING [None]
  - SYNOVITIS [None]
  - TARSAL TUNNEL SYNDROME [None]
